FAERS Safety Report 15815180 (Version 5)
Quarter: 2019Q2

REPORT INFORMATION
  Report Type: Spontaneous
  Country: GR (occurrence: GR)
  Receive Date: 20190112
  Receipt Date: 20190617
  Transmission Date: 20190711
  Serious: Yes (Death, Life-Threatening, Other)
  Sender: FDA-Public Use
  Company Number: GR-ACCORD-101322

PATIENT
  Age: 25 Year
  Sex: Male

DRUGS (11)
  1. FLURBIPROFEN. [Interacting]
     Active Substance: FLURBIPROFEN
  2. DESLORATADINE. [Interacting]
     Active Substance: DESLORATADINE
  3. PROPRANOLOL [Interacting]
     Active Substance: PROPRANOLOL HYDROCHLORIDE
  4. CITALOPRAM [Interacting]
     Active Substance: CITALOPRAM HYDROBROMIDE
     Indication: DEPRESSION
  5. ALPRAZOLAM. [Interacting]
     Active Substance: ALPRAZOLAM
     Indication: DEPRESSION
     Route: 048
  6. FLUOXETINE [Interacting]
     Active Substance: FLUOXETINE HYDROCHLORIDE
     Indication: DEPRESSION
  7. QUETIAPINE. [Suspect]
     Active Substance: QUETIAPINE
     Indication: DEPRESSION
  8. VALPROIC ACID. [Interacting]
     Active Substance: VALPROIC ACID
     Indication: DEPRESSION
  9. SEROPRAM (CITALOPRAM HYDROCHLORIDE) [Interacting]
     Active Substance: CITALOPRAM HYDROCHLORIDE
     Indication: DEPRESSION
  10. MOCLOBEMIDE [Interacting]
     Active Substance: MOCLOBEMIDE
     Indication: DEPRESSION
  11. PERINDOPRIL/PERINDOPRIL ERBUMINE [Interacting]
     Active Substance: PERINDOPRIL ERBUMINE
     Indication: PRODUCT USED FOR UNKNOWN INDICATION

REACTIONS (9)
  - Ischaemic cerebral infarction [Fatal]
  - Arrhythmia [Fatal]
  - Intentional overdose [Fatal]
  - Toxicity to various agents [Fatal]
  - Sudden death [Fatal]
  - Contraindicated product administered [Fatal]
  - Drug interaction [Fatal]
  - Hypertrophic cardiomyopathy [Fatal]
  - Electrocardiogram QT prolonged [Fatal]
